FAERS Safety Report 25501847 (Version 1)
Quarter: 2025Q3

REPORT INFORMATION
  Report Type: Spontaneous
  Country: KR (occurrence: KR)
  Receive Date: 20250702
  Receipt Date: 20250702
  Transmission Date: 20251021
  Serious: Yes (Other)
  Sender: SANOFI AVENTIS
  Company Number: KR-ASTELLAS-2023US037754

PATIENT
  Age: 79 Year
  Sex: Male

DRUGS (2)
  1. HARNAL [Suspect]
     Active Substance: TAMSULOSIN HYDROCHLORIDE
     Indication: Chromaturia
     Dosage: 0.2 MG (ONE TABLET), ONCE DAILY AFTER DINNER AND AT BEDTIME SINCE ABOUT 3 MONTHS AGO
     Route: 065
     Dates: start: 2003, end: 2004
  2. HARNAL [Suspect]
     Active Substance: TAMSULOSIN HYDROCHLORIDE
     Indication: Dysuria

REACTIONS (3)
  - Nephrolithiasis [Unknown]
  - Constipation [Not Recovered/Not Resolved]
  - Off label use [Unknown]
